FAERS Safety Report 9071105 (Version 1)
Quarter: 2013Q1

REPORT INFORMATION
  Report Type: Report from Study
  Country: US (occurrence: US)
  Receive Date: 20130129
  Receipt Date: 20130129
  Transmission Date: 20140127
  Serious: No
  Sender: FDA-Public Use
  Company Number: US-ABBOTT-12P-163-0930030-00

PATIENT
  Age: 48 Year
  Sex: Female

DRUGS (5)
  1. HUMIRA 40 MG/0.8 ML PEN [Suspect]
     Indication: CROHN^S DISEASE
     Dates: start: 20120314, end: 20120426
  2. CLARITIN-D [Concomitant]
     Indication: SEASONAL ALLERGY
     Dosage: OVER THE COUNTER AS NEEDED
  3. MUCINEX [Concomitant]
     Indication: SEASONAL ALLERGY
     Dosage: OVER THE COUNTER AS NEEDED
  4. FIORICET [Concomitant]
     Indication: MIGRAINE
     Dosage: ONE OR TWO TABLETS EVERY 4 HOURS AS NEEDED
  5. VICODIN 5 [Concomitant]
     Indication: BACK PAIN
     Dosage: ONE HALF TABLET FOR BACK PAIN AS NEEDED

REACTIONS (1)
  - Headache [Not Recovered/Not Resolved]
